FAERS Safety Report 5957866-3 (Version None)
Quarter: 2008Q4

REPORT INFORMATION
  Report Type: 
  Country: None (occurrence: None)
  Receive Date: 20081119
  Receipt Date: 20081111
  Transmission Date: 20090506
  Serious: Yes (Other)
  Sender: FDA-Public Use
  Company Number: US-ROCHE-594339

PATIENT
  Age: 64 Year
  Sex: Female

DRUGS (1)
  1. BONIVA [Suspect]
     Indication: OSTEOPENIA
     Dosage: OTHER INDICATION REPORTED AS: OSTEOPOROSIS.
     Route: 065
     Dates: start: 20060101

REACTIONS (1)
  - JAW OPERATION [None]
